FAERS Safety Report 14275338 (Version 1)
Quarter: 2017Q4

REPORT INFORMATION
  Report Type: Spontaneous
  Country: CH (occurrence: CH)
  Receive Date: 20171211
  Receipt Date: 20171211
  Transmission Date: 20180321
  Serious: Yes (Hospitalization, Other)
  Sender: FDA-Public Use
  Company Number: CH-OTSUKA-2016_010128

PATIENT
  Age: 27 Year
  Sex: Male

DRUGS (1)
  1. ABILIFY [Suspect]
     Active Substance: ARIPIPRAZOLE
     Indication: AUTISM SPECTRUM DISORDER
     Dosage: UNK
     Route: 065

REACTIONS (13)
  - Cardiac pacemaker insertion [Unknown]
  - Nausea [Unknown]
  - Seizure [Unknown]
  - Atrial fibrillation [Unknown]
  - Rhinitis [Unknown]
  - Atrioventricular block second degree [Unknown]
  - Influenza [Unknown]
  - Tracheobronchitis [Unknown]
  - Malaise [Unknown]
  - Syncope [Recovered/Resolved]
  - Choking [Unknown]
  - Adams-Stokes syndrome [Unknown]
  - Off label use [Unknown]

NARRATIVE: CASE EVENT DATE: 20160219
